APPROVED DRUG PRODUCT: TRAZODONE HYDROCHLORIDE
Active Ingredient: TRAZODONE HYDROCHLORIDE
Strength: 100MG
Dosage Form/Route: TABLET;ORAL
Application: A070921 | Product #001
Applicant: QUANTUM PHARMICS LTD
Approved: Dec 1, 1986 | RLD: No | RS: No | Type: DISCN